FAERS Safety Report 11659864 (Version 1)
Quarter: 2015Q4

REPORT INFORMATION
  Report Type: Spontaneous
  Country: CH (occurrence: CH)
  Receive Date: 20151026
  Receipt Date: 20151026
  Transmission Date: 20160304
  Serious: Yes (Death, Other)
  Sender: FDA-Public Use
  Company Number: CH-JNJFOC-20151009809

PATIENT
  Age: 23 Month
  Sex: Male
  Weight: 13 kg

DRUGS (27)
  1. MABTHERA [Suspect]
     Active Substance: RITUXIMAB
     Indication: PRODUCT USED FOR UNKNOWN INDICATION
     Route: 041
     Dates: start: 20150428, end: 20150603
  2. VELCADE [Suspect]
     Active Substance: BORTEZOMIB
     Indication: PRODUCT USED FOR UNKNOWN INDICATION
     Route: 042
     Dates: start: 20150604, end: 20150604
  3. ZOVIRAX [Suspect]
     Active Substance: ACYCLOVIR
     Indication: PRODUCT USED FOR UNKNOWN INDICATION
     Route: 048
     Dates: start: 20150615, end: 20150616
  4. CELLCEPT [Suspect]
     Active Substance: MYCOPHENOLATE MOFETIL\MYCOPHENOLATE MOFETIL HYDROCHLORIDE
     Indication: PRODUCT USED FOR UNKNOWN INDICATION
     Route: 048
     Dates: start: 20150513, end: 20150715
  5. NOPIL [Suspect]
     Active Substance: SULFAMETHOXAZOLE\TRIMETHOPRIM
     Indication: PRODUCT USED FOR UNKNOWN INDICATION
     Route: 048
     Dates: start: 20150615, end: 20150618
  6. OMEZOL [Suspect]
     Active Substance: OMEPRAZOLE
     Indication: PRODUCT USED FOR UNKNOWN INDICATION
     Route: 042
     Dates: start: 20150615, end: 20150716
  7. VANCOCIN [Concomitant]
     Active Substance: VANCOMYCIN HYDROCHLORIDE
     Route: 042
     Dates: start: 20150615, end: 20150623
  8. SPORANOX [Suspect]
     Active Substance: ITRACONAZOLE
     Indication: PRODUCT USED FOR UNKNOWN INDICATION
     Route: 048
     Dates: start: 20150709, end: 20150713
  9. RENITEN SUBMITE [Suspect]
     Active Substance: ENALAPRIL MALEATE
     Indication: PRODUCT USED FOR UNKNOWN INDICATION
     Route: 065
     Dates: start: 20150702, end: 20150707
  10. VINCRISTINE [Concomitant]
     Active Substance: VINCRISTINE
     Route: 065
     Dates: start: 20150417, end: 20150604
  11. ACTILYSE [Concomitant]
     Active Substance: ALTEPLASE
     Route: 042
     Dates: start: 20150625, end: 20150625
  12. TRACRIUM [Concomitant]
     Active Substance: ATRACURIUM BESYLATE
     Route: 042
     Dates: start: 20150626, end: 20150626
  13. PROPRANOLOL [Concomitant]
     Active Substance: PROPRANOLOL\PROPRANOLOL HYDROCHLORIDE
     Route: 048
     Dates: start: 20150617, end: 20150716
  14. MORPHIN HCL SINTETICA [Concomitant]
     Dosage: DOSE: 40-50 MCG/KG/HOUR
     Route: 042
     Dates: start: 20150615, end: 20150716
  15. SPIRICORT [Concomitant]
     Active Substance: PREDNISOLONE
     Dosage: 1 - 2 MG/KG/DAY.
     Route: 048
     Dates: start: 20150130, end: 20150704
  16. VELCADE [Suspect]
     Active Substance: BORTEZOMIB
     Indication: PRODUCT USED FOR UNKNOWN INDICATION
     Dosage: 1 MINUTE.
     Route: 042
     Dates: start: 20150626, end: 20150626
  17. NIFEDIPINE RATIOPHARM [Suspect]
     Active Substance: NIFEDIPINE
     Indication: PRODUCT USED FOR UNKNOWN INDICATION
     Route: 048
     Dates: start: 20150617, end: 20150707
  18. SPIRICORT [Concomitant]
     Active Substance: PREDNISOLONE
     Route: 048
     Dates: start: 20150615, end: 20150615
  19. VELCADE [Suspect]
     Active Substance: BORTEZOMIB
     Indication: PRODUCT USED FOR UNKNOWN INDICATION
     Route: 042
     Dates: start: 20150417, end: 20150417
  20. MABTHERA [Suspect]
     Active Substance: RITUXIMAB
     Indication: PRODUCT USED FOR UNKNOWN INDICATION
     Route: 041
     Dates: start: 20150625, end: 20150625
  21. DORMICUM [Concomitant]
     Active Substance: MIDAZOLAM\MIDAZOLAM HYDROCHLORIDE
     Dosage: DOSE: 0.2 TO 0.3 MG/KG/HOUR
     Route: 042
     Dates: start: 20150615, end: 20150616
  22. SPORANOX [Suspect]
     Active Substance: ITRACONAZOLE
     Indication: PRODUCT USED FOR UNKNOWN INDICATION
     Route: 048
     Dates: start: 20150222, end: 20150707
  23. RAPAMUNE [Suspect]
     Active Substance: SIROLIMUS
     Indication: PRODUCT USED FOR UNKNOWN INDICATION
     Dosage: ROUTE OF ADMINISTRATION: ^TUBE^
     Route: 065
     Dates: start: 20150513, end: 20150704
  24. NERVIFENE [Concomitant]
     Active Substance: CHLORAL HYDRATE
     Route: 054
     Dates: start: 20150615, end: 20150716
  25. RAPAMUNE [Suspect]
     Active Substance: SIROLIMUS
     Indication: PRODUCT USED FOR UNKNOWN INDICATION
     Route: 065
     Dates: start: 20150615, end: 20150615
  26. ROCURONIUM [Concomitant]
     Active Substance: ROCURONIUM BROMIDE
     Dosage: 0.6-1.2 MG/KG/HOUR
     Route: 042
     Dates: start: 20150615, end: 20150630
  27. AMPHO MORONAL [Concomitant]
     Route: 048
     Dates: start: 20150707, end: 20150716

REACTIONS (9)
  - Renal failure [Fatal]
  - Hyperbilirubinaemia [Fatal]
  - Transaminases increased [Fatal]
  - Oxygen saturation decreased [Fatal]
  - Device related infection [Unknown]
  - Oedema peripheral [Fatal]
  - Septic shock [Unknown]
  - Evans syndrome [Unknown]
  - Liver disorder [Fatal]

NARRATIVE: CASE EVENT DATE: 20150411
